FAERS Safety Report 12311769 (Version 4)
Quarter: 2016Q3

REPORT INFORMATION
  Report Type: Spontaneous
  Country: JP (occurrence: JP)
  Receive Date: 20160427
  Receipt Date: 20160830
  Transmission Date: 20161109
  Serious: Yes (Hospitalization)
  Sender: FDA-Public Use
  Company Number: JP-SA-2016SA080689

PATIENT
  Age: 65 Year
  Sex: Female
  Weight: 69.9 kg

DRUGS (5)
  1. RITUXAN [Concomitant]
     Active Substance: RITUXIMAB
     Route: 042
     Dates: start: 20130502, end: 20130602
  2. FLUDARABINE PHOSPHATE. [Suspect]
     Active Substance: FLUDARABINE PHOSPHATE
     Indication: CHRONIC LYMPHOCYTIC LEUKAEMIA
     Dosage: 5 DOSES IN 4 WEEKS
     Route: 042
     Dates: start: 20130402, end: 20130502
  3. FLUDARABINE PHOSPHATE. [Suspect]
     Active Substance: FLUDARABINE PHOSPHATE
     Indication: CHRONIC LYMPHOCYTIC LEUKAEMIA
     Dosage: 3 DOSES IN 4 WEEKS
     Route: 042
     Dates: start: 20130503, end: 20130602
  4. ENDOXAN [Concomitant]
     Active Substance: CYCLOPHOSPHAMIDE
     Route: 042
     Dates: start: 20130503, end: 20130602
  5. FLUDARABINE PHOSPHATE. [Suspect]
     Active Substance: FLUDARABINE PHOSPHATE
     Indication: CHRONIC LYMPHOCYTIC LEUKAEMIA
     Dosage: 5 DOSES IN 4 WEEKS
     Route: 042
     Dates: start: 20130228, end: 20130401

REACTIONS (3)
  - Oedema peripheral [Unknown]
  - Jaundice [Unknown]
  - Ascites [Unknown]

NARRATIVE: CASE EVENT DATE: 20130427
